FAERS Safety Report 9806366 (Version 1)
Quarter: 2014Q1

REPORT INFORMATION
  Report Type: Spontaneous
  Country: US (occurrence: US)
  Receive Date: 20140109
  Receipt Date: 20140109
  Transmission Date: 20141002
  Serious: Yes (Other)
  Sender: FDA-Public Use
  Company Number: US-RB-061841-14

PATIENT
  Age: 75 Year
  Sex: Male

DRUGS (1)
  1. MUCINEX MAXIMUM STRENGTH [Suspect]
     Indication: PRODUCT USED FOR UNKNOWN INDICATION
     Dosage: PATIENT TOOK LAST DOSE AT 10:00 P.M. ON 30-DEC-2013. PATIENT TOOK TOTAL OF 2 DOSES.
     Route: 048
     Dates: start: 20131229

REACTIONS (5)
  - Choking [Recovered/Resolved]
  - Anxiety [Recovered/Resolved]
  - Dyspnoea [Recovered/Resolved]
  - Foreign body [Recovered/Resolved]
  - Vomiting [Recovered/Resolved]
